FAERS Safety Report 20578504 (Version 1)
Quarter: 2022Q1

REPORT INFORMATION
  Report Type: Spontaneous
  Country: US (occurrence: None)
  Receive Date: 20220310
  Receipt Date: 20220310
  Transmission Date: 20220423
  Serious: No
  Sender: FDA-Public Use
  Company Number: None

PATIENT
  Age: 49 Year
  Sex: Male
  Weight: 111.13 kg

DRUGS (1)
  1. RASUVO [Suspect]
     Active Substance: METHOTREXATE SODIUM
     Indication: Rheumatoid arthritis
     Dosage: OTHER QUANTITY : 25MG (0.5ML);?FREQUENCY : AS DIRECTED;?
     Route: 058
     Dates: start: 202110

REACTIONS (2)
  - Therapy interrupted [None]
  - COVID-19 [None]
